FAERS Safety Report 10072164 (Version 1)
Quarter: 2014Q2

REPORT INFORMATION
  Report Type: Spontaneous
  Country: US (occurrence: None)
  Receive Date: 20140410
  Receipt Date: 20140410
  Transmission Date: 20141212
  Serious: Yes (Hospitalization, Other)
  Sender: FDA-Public Use
  Company Number: None

PATIENT
  Age: 14 Year
  Sex: Female
  Weight: 58.97 kg

DRUGS (2)
  1. ALKA-SELTZER PLUS SEVERE SINUS AND COLD [Suspect]
     Indication: SINUS CONGESTION
     Dosage: 2 PILLS?ONE TIME ?TAKEN BY MOUTH
     Route: 048
  2. ALKA-SELTZER PLUS SEVERE SINUS AND COLD [Suspect]
     Indication: NASOPHARYNGITIS
     Dosage: 2 PILLS?ONE TIME ?TAKEN BY MOUTH
     Route: 048

REACTIONS (10)
  - Lethargy [None]
  - Dizziness [None]
  - Pallor [None]
  - Convulsion [None]
  - Tremor [None]
  - Muscle spasms [None]
  - Muscle twitching [None]
  - Pain in jaw [None]
  - Pain in extremity [None]
  - Chest pain [None]
